FAERS Safety Report 5256945-6 (Version None)
Quarter: 2007Q1

REPORT INFORMATION
  Report Type: 
  Country: None (occurrence: None)
  Receive Date: 20070307
  Receipt Date: 20070302
  Transmission Date: 20070707
  Serious: Yes (Hospitalization)
  Sender: FDA-Public Use
  Company Number: DEWYE854102MAR07

PATIENT
  Sex: Female
  Weight: 70 kg

DRUGS (5)
  1. VENLAFAXINE HCL [Suspect]
     Dosage: OVERDOSE AMOUNT 2250 MG
     Route: 048
     Dates: start: 20070302, end: 20070302
  2. TRIMIPRAMINE MALEATE [Suspect]
     Dosage: 10 TABLETS (OVERDOSE AMOUNT 1000 MG)
     Route: 048
     Dates: start: 20070302, end: 20070302
  3. NOCTAMID [Suspect]
     Dosage: OVERDOSE AMOUNT 20 MG
     Route: 048
     Dates: start: 20070302, end: 20070302
  4. ACETYLSALICYLIC ACID SRT [Suspect]
     Dosage: 20 TABLETS (OVERDOSE AMOUNT 10000 MG)
     Route: 048
     Dates: start: 20070302, end: 20070302
  5. RISPERDAL [Suspect]
     Dosage: 28 TABLETS (OVERDOSE AMOUNT 28 MG)
     Route: 048
     Dates: start: 20070302, end: 20070302

REACTIONS (3)
  - FATIGUE [None]
  - GASTROINTESTINAL MOTILITY DISORDER [None]
  - INTENTIONAL OVERDOSE [None]
